FAERS Safety Report 9705308 (Version 3)
Quarter: 2014Q1

REPORT INFORMATION
  Report Type: Report from Study
  Country: US (occurrence: US)
  Receive Date: 20131122
  Receipt Date: 20140203
  Transmission Date: 20141002
  Serious: Yes (Other)
  Sender: FDA-Public Use
  Company Number: US-PURDUE-USA-2013-0108762

PATIENT
  Age: 59 Year
  Sex: Female
  Weight: 47.17 kg

DRUGS (5)
  1. OXY CR TAB [Suspect]
     Indication: PAIN
     Dosage: 80 MG, SEE TEXT
     Route: 048
     Dates: start: 1998
  2. OXY CR TAB [Suspect]
     Dosage: 160 MG, Q12H PRN
     Route: 048
     Dates: start: 20130917
  3. OXY CR TAB [Suspect]
     Dosage: 160 MG, BID
     Route: 048
     Dates: start: 20131016
  4. OXYCODONE HYDROCHLORIDE (SIMILAR TO NDA 22-272) [Suspect]
     Indication: PAIN
     Dosage: 30 MG, SEE TEXT
     Route: 048
     Dates: start: 2005
  5. LYRICA [Suspect]
     Indication: PAIN
     Dosage: 75 MG, TID
     Route: 048

REACTIONS (6)
  - Pathological fracture [Unknown]
  - Hip fracture [Unknown]
  - Arthralgia [Unknown]
  - Abnormal behaviour [Unknown]
  - Fall [Unknown]
  - Chest pain [Unknown]
